FAERS Safety Report 21358212 (Version 1)
Quarter: 2022Q3

REPORT INFORMATION
  Report Type: Other
  Country: DE (occurrence: None)
  Receive Date: 20220921
  Receipt Date: 20220921
  Transmission Date: 20221027
  Serious: No
  Sender: FDA-Public Use
  Company Number: DE-ROCHE-3182617

PATIENT
  Sex: Male

DRUGS (1)
  1. OCREVUS [Suspect]
     Active Substance: OCRELIZUMAB
     Indication: Multiple sclerosis
     Dosage: MOST RECENT DOSE: 600MG?MOST RECENT DOSE PRIOR TO EVENT : 13/AUG/2021.
     Route: 042
     Dates: start: 20191029

REACTIONS (1)
  - COVID-19 [Unknown]
